FAERS Safety Report 10886704 (Version 1)
Quarter: 2015Q1

REPORT INFORMATION
  Report Type: Spontaneous
  Country: US (occurrence: US)
  Receive Date: 20150304
  Receipt Date: 20150304
  Transmission Date: 20150721
  Serious: Yes (Other)
  Sender: FDA-Public Use
  Company Number: US-PFIZER INC-2015078743

PATIENT
  Age: 51 Year
  Sex: Male

DRUGS (1)
  1. PRISTIQ EXTENDED RELEASE [Suspect]
     Active Substance: DESVENLAFAXINE SUCCINATE
     Dosage: 100 MG, 1X/DAY IN THE MORNING
     Route: 048

REACTIONS (4)
  - Neuropathy peripheral [Unknown]
  - Back pain [Unknown]
  - Tremor [Unknown]
  - Fall [Unknown]
